FAERS Safety Report 16127193 (Version 1)
Quarter: 2019Q2

REPORT INFORMATION
  Report Type: Spontaneous
  Country: MX (occurrence: MX)
  Receive Date: 20190327
  Receipt Date: 20190327
  Transmission Date: 20190711
  Serious: Yes (Hospitalization, Disabling)
  Sender: FDA-Public Use
  Company Number: None

PATIENT
  Age: 65 Year
  Sex: Female
  Weight: 58 kg

DRUGS (3)
  1. ZOLEDRONIC [Suspect]
     Active Substance: ZOLEDRONIC ACID
     Indication: OSTEOPENIA
     Dates: start: 20181107, end: 20181107
  2. ZOLEDRONIC [Suspect]
     Active Substance: ZOLEDRONIC ACID
     Indication: OSTEOPOROSIS
     Dates: start: 20181107, end: 20181107
  3. JANUVIA [Concomitant]
     Active Substance: SITAGLIPTIN PHOSPHATE

REACTIONS (17)
  - Eye pain [None]
  - Vision blurred [None]
  - Diarrhoea [None]
  - Constipation [None]
  - Nausea [None]
  - Dental restoration failure [None]
  - Influenza like illness [None]
  - Headache [None]
  - Urinary tract infection [None]
  - Myalgia [None]
  - Arthralgia [None]
  - Tinnitus [None]
  - Gastric disorder [None]
  - Dizziness [None]
  - Ocular hyperaemia [None]
  - Eye swelling [None]
  - Feeling abnormal [None]

NARRATIVE: CASE EVENT DATE: 20181107
